FAERS Safety Report 5406262-6 (Version None)
Quarter: 2007Q3

REPORT INFORMATION
  Report Type: 
  Country: None (occurrence: None)
  Receive Date: 20070806
  Receipt Date: 20070727
  Transmission Date: 20080115
  Serious: Yes (Life-Threatening)
  Sender: FDA-Public Use
  Company Number: CL-BAXTER-2007BH004836

PATIENT
  Sex: Male

DRUGS (1)
  1. 1.5% GLYCINE IRRIGATION IN PLASTIC CONTAINER [Suspect]
     Indication: BLADDER IRRIGATION
     Dosage: DOSE UNIT:UNKNOWN
     Route: 050
     Dates: start: 20070201, end: 20070201

REACTIONS (2)
  - CARDIO-RESPIRATORY ARREST [None]
  - HYPONATRAEMIA [None]
